FAERS Safety Report 19878133 (Version 2)
Quarter: 2021Q4

REPORT INFORMATION
  Report Type: Report from Study
  Country: CA (occurrence: CA)
  Receive Date: 20210923
  Receipt Date: 20211004
  Transmission Date: 20220303
  Serious: Yes (Hospitalization)
  Sender: FDA-Public Use
  Company Number: CA-TEVA-2021-CA-1955614

PATIENT
  Age: 74 Year
  Sex: Female

DRUGS (4)
  1. CLOPIDOGREL [Suspect]
     Active Substance: CLOPIDOGREL BISULFATE
     Indication: Antiplatelet therapy
     Dosage: 75 MILLIGRAM DAILY;
     Route: 065
  2. PALBOCICLIB [Interacting]
     Active Substance: PALBOCICLIB
     Indication: Breast cancer stage IV
     Dosage: 125 MILLIGRAM DAILY;
     Route: 065
  3. RIVAROXABAN [Interacting]
     Active Substance: RIVAROXABAN
     Indication: Anticoagulant therapy
     Dosage: 20 MILLIGRAM DAILY;
     Route: 048
  4. RIVAROXABAN [Interacting]
     Active Substance: RIVAROXABAN
     Indication: Pulmonary embolism

REACTIONS (5)
  - Drug interaction [Unknown]
  - Haemorrhage [Unknown]
  - Haemorrhage [Unknown]
  - Arterial haemorrhage [Unknown]
  - Haemoglobin decreased [Unknown]
